FAERS Safety Report 7814875-7 (Version None)
Quarter: 2011Q4

REPORT INFORMATION
  Report Type: 
  Country: None (occurrence: None)
  Receive Date: 20111014
  Receipt Date: 20111014
  Transmission Date: 20120403
  Serious: Yes (Death)
  Sender: FDA-Public Use
  Company Number: US-PFIZER INC-2010001499

PATIENT
  Age: 20 Year
  Sex: Male

DRUGS (4)
  1. OXYCODONE HCL [Suspect]
     Dosage: UNK
     Route: 065
  2. CITALOPRAM HYDROBROMIDE [Suspect]
     Dosage: UNK
     Route: 065
  3. TRAMADOL HCL [Suspect]
  4. CODEINE PHOSPHATE AND ACETAMINOPHEN [Suspect]
     Dosage: UNK

REACTIONS (4)
  - DRUG ABUSE [None]
  - TOXICITY TO VARIOUS AGENTS [None]
  - RESPIRATORY ARREST [None]
  - CARDIAC ARREST [None]
